FAERS Safety Report 10842195 (Version 5)
Quarter: 2015Q2

REPORT INFORMATION
  Report Type: Report from Study
  Country: US (occurrence: US)
  Receive Date: 20150220
  Receipt Date: 20150402
  Transmission Date: 20150821
  Serious: Yes (Hospitalization)
  Sender: FDA-Public Use
  Company Number: US-BAYER-2015-025350

PATIENT
  Age: 71 Year
  Sex: Male
  Weight: 82.4 kg

DRUGS (21)
  1. RADIUM-223 DICHLORIDE [Suspect]
     Active Substance: RADIUM RA-223 DICHLORIDE
     Indication: METASTASES TO BONE
  2. ASPIRIN. [Concomitant]
     Active Substance: ASPIRIN
     Indication: NECK PAIN
     Dosage: 325 MG, PRN
     Route: 048
     Dates: start: 20140227
  3. DOXYCYCLINE MONOHYDRATE [DOXYCYCLINE] [Concomitant]
     Indication: COUGH
     Dosage: 100 MG, BID
     Route: 048
     Dates: start: 20150125
  4. DRONABINOL. [Concomitant]
     Active Substance: DRONABINOL
     Indication: DECREASED APPETITE
     Dosage: 25 MG, QD
     Route: 048
     Dates: start: 20140116
  5. FIBER [Concomitant]
     Active Substance: PSYLLIUM HUSK
     Indication: CONSTIPATION PROPHYLAXIS
     Dosage: 3 DF (TABS), QD
     Route: 048
     Dates: start: 20140116
  6. PRAVASTATIN [Concomitant]
     Active Substance: PRAVASTATIN\PRAVASTATIN SODIUM
     Indication: BLOOD CHOLESTEROL INCREASED
     Dosage: 40 MG, QD
     Route: 048
     Dates: start: 20140227
  7. XGEVA [Concomitant]
     Active Substance: DENOSUMAB
     Indication: PROPHYLAXIS
     Dosage: 120 MG, Q6WK
     Route: 030
     Dates: start: 20130912
  8. CLOPIDOGREL [Concomitant]
     Active Substance: CLOPIDOGREL BISULFATE
     Indication: THROMBOSIS PROPHYLAXIS
     Dosage: 75 MG, QD
     Route: 048
     Dates: start: 2006
  9. OXYCODONE [Concomitant]
     Active Substance: OXYCODONE
     Indication: GROIN PAIN
     Dosage: 10 MG, PRN
     Route: 048
     Dates: start: 20150204
  10. OXYCODONE [Concomitant]
     Active Substance: OXYCODONE
     Indication: BACK PAIN
  11. TAMSULOSIN HYDROCHLORIDE. [Concomitant]
     Active Substance: TAMSULOSIN HYDROCHLORIDE
     Indication: POLLAKIURIA
     Dosage: 4 MG, QD
     Route: 048
     Dates: start: 20120405
  12. TRICOR [Concomitant]
     Active Substance: FENOFIBRATE
     Indication: ATRIAL FIBRILLATION
     Dosage: 40 MG, QD
     Route: 048
     Dates: start: 20120405
  13. ASPIRIN. [Concomitant]
     Active Substance: ASPIRIN
     Indication: GROIN PAIN
  14. OMEPRAZOLE. [Concomitant]
     Active Substance: OMEPRAZOLE
     Indication: GASTROOESOPHAGEAL REFLUX DISEASE
     Dosage: 20 MG, PRN
     Route: 048
     Dates: start: 20110823
  15. POTASSIUM CHLORIDE. [Concomitant]
     Active Substance: POTASSIUM CHLORIDE
     Indication: ATRIAL FIBRILLATION
     Dosage: 20 MEQ, QD
     Route: 048
     Dates: start: 20120517
  16. OXYCODONE [Concomitant]
     Active Substance: OXYCODONE
     Indication: NECK PAIN
     Dosage: 5 MG, PRN
     Route: 048
     Dates: start: 20130912
  17. CALCIUM [Concomitant]
     Active Substance: CALCIUM
     Indication: PROPHYLAXIS
     Dosage: 500 MG, QD
     Route: 048
     Dates: start: 20140227
  18. LUPRON [Concomitant]
     Active Substance: LEUPROLIDE ACETATE
     Indication: PROSTATE CANCER
     Dosage: 225 MG, Q12WKS
     Route: 030
     Dates: start: 20130912
  19. SOTALOL HYDROCHLORIDE. [Concomitant]
     Active Substance: SOTALOL HYDROCHLORIDE
     Indication: ATRIAL FIBRILLATION
     Dosage: 40 MG, BID
     Route: 048
     Dates: start: 20130314
  20. VITAMIN D [Concomitant]
     Active Substance: CHOLECALCIFEROL
     Indication: PROPHYLAXIS
     Dosage: 1000 U, QD
     Route: 048
     Dates: start: 20111115
  21. RADIUM-223 DICHLORIDE [Suspect]
     Active Substance: RADIUM RA-223 DICHLORIDE
     Indication: PROSTATE CANCER METASTATIC
     Dosage: 50 KBQ/KG Q4WEEKS
     Route: 042
     Dates: start: 20140910, end: 20150211

REACTIONS (2)
  - Muscular weakness [Not Recovered/Not Resolved]
  - Acute coronary syndrome [Recovered/Resolved]

NARRATIVE: CASE EVENT DATE: 20150125
